FAERS Safety Report 24212347 (Version 1)
Quarter: 2024Q3

REPORT INFORMATION
  Report Type: Spontaneous
  Country: US (occurrence: US)
  Receive Date: 20240815
  Receipt Date: 20240815
  Transmission Date: 20241017
  Serious: No
  Sender: BAUSCH AND LOMB
  Company Number: US-BAUSCHBL-2024BNL031208

PATIENT
  Sex: Female

DRUGS (1)
  1. ATROPINE SULFATE [Suspect]
     Active Substance: ATROPINE SULFATE
     Indication: Product used for unknown indication
     Dosage: 1 DROP IN HER EYE
     Route: 065

REACTIONS (5)
  - Erythema of eyelid [Unknown]
  - Pruritus [Unknown]
  - Dry skin [Unknown]
  - Rash [Unknown]
  - Skin exfoliation [Unknown]
